FAERS Safety Report 10562188 (Version 2)
Quarter: 2014Q4

REPORT INFORMATION
  Report Type: Spontaneous
  Country: US (occurrence: US)
  Receive Date: 20141104
  Receipt Date: 20141126
  Transmission Date: 20150529
  Serious: No
  Sender: FDA-Public Use
  Company Number: US-BIOGENIDEC-2014BI113480

PATIENT
  Age: 41 Year
  Sex: Female

DRUGS (2)
  1. TECFIDERA [Suspect]
     Active Substance: DIMETHYL FUMARATE
     Indication: MULTIPLE SCLEROSIS
     Route: 048
  2. TECFIDERA [Suspect]
     Active Substance: DIMETHYL FUMARATE
     Indication: MULTIPLE SCLEROSIS
     Dates: start: 20140505, end: 20140522

REACTIONS (9)
  - Nausea [Recovered/Resolved]
  - Feeding disorder [Recovered/Resolved]
  - Tricuspid valve incompetence [Not Recovered/Not Resolved]
  - Depressed mood [Not Recovered/Not Resolved]
  - Flushing [Recovered/Resolved]
  - Frustration [Not Recovered/Not Resolved]
  - Drug intolerance [Recovered/Resolved]
  - Left atrial dilatation [Not Recovered/Not Resolved]
  - Right atrial dilatation [Not Recovered/Not Resolved]

NARRATIVE: CASE EVENT DATE: 2014
